FAERS Safety Report 8602969-8 (Version None)
Quarter: 2012Q3

REPORT INFORMATION
  Report Type: 
  Country: None (occurrence: None)
  Receive Date: 20120817
  Receipt Date: 20120803
  Transmission Date: 20120928
  Serious: Yes (Other)
  Sender: FDA-Public Use
  Company Number: US-MPIJNJ-2012-05720

PATIENT
  Sex: Male
  Weight: 134.6 kg

DRUGS (18)
  1. BACTRIM DS [Concomitant]
     Indication: CELLULITIS
     Dosage: UNK, BID
     Route: 048
     Dates: start: 20120126, end: 20120205
  2. PROVENTIL                          /00139501/ [Concomitant]
     Indication: CHRONIC OBSTRUCTIVE PULMONARY DISEASE
     Dosage: UNK
     Route: 055
     Dates: start: 20070101
  3. NITROGLYCERIN [Concomitant]
     Indication: ANGINA PECTORIS
     Dosage: UNK, PRN
     Route: 048
     Dates: start: 20030101
  4. CALCIUM [Concomitant]
     Indication: HYPOVITAMINOSIS
     Dosage: UNK
     Route: 048
     Dates: start: 20100101
  5. MECLIZINE [Concomitant]
     Indication: VERTIGO
     Dosage: 25 MG, QD
     Route: 048
     Dates: start: 20100101
  6. FLOVENT [Concomitant]
     Indication: COUGH
     Dosage: 50 UNK, UNK
     Dates: start: 20070101
  7. POTASSIUM CHLORIDE [Concomitant]
     Indication: MINERAL SUPPLEMENTATION
     Dosage: 20 MG, QD
     Route: 048
     Dates: start: 20070101
  8. LIPITOR [Concomitant]
     Indication: HYPERCHOLESTEROLAEMIA
     Dosage: 40 MG, UNK
     Route: 048
     Dates: start: 20090101
  9. VELCADE [Suspect]
     Indication: MANTLE CELL LYMPHOMA
     Dosage: 560 MG, QD
     Dates: start: 20120104, end: 20120728
  10. OSTEO BI-FLEX [Concomitant]
     Indication: PROPHYLAXIS
     Dosage: UNK, QD
     Route: 048
     Dates: start: 20120301
  11. BACTROBAN [Concomitant]
     Indication: RASH
     Dosage: UNK, BID
     Route: 061
     Dates: start: 20120620
  12. FLOVENT [Concomitant]
     Indication: CHRONIC OBSTRUCTIVE PULMONARY DISEASE
     Dosage: UNK, BID
     Route: 055
     Dates: start: 20080101
  13. LASIX [Concomitant]
     Indication: ANGINA PECTORIS
     Dosage: 20 MG, TID
     Route: 048
     Dates: start: 20030101
  14. PLAVIX [Concomitant]
     Indication: ANGINA PECTORIS
     Dosage: 75 MG, QD
     Route: 048
     Dates: start: 20030101
  15. ASPIRIN [Concomitant]
     Indication: ANGINA PECTORIS
     Dosage: 325 MG, QD
     Route: 048
     Dates: start: 20030101
  16. LOSARTAN POTASSIUM [Concomitant]
     Indication: HYPERTENSION
     Dosage: 50 MG, QD
     Route: 048
     Dates: start: 20070101
  17. LOVAZA [Concomitant]
     Indication: HYPERCHOLESTEROLAEMIA
     Dosage: 1 G, UNK
     Route: 048
     Dates: start: 20110101
  18. VITAMIN D [Concomitant]
     Indication: HYPOVITAMINOSIS
     Dosage: UNK
     Dates: start: 20100101

REACTIONS (2)
  - MANTLE CELL LYMPHOMA [None]
  - BLADDER CANCER [None]
